FAERS Safety Report 18916411 (Version 4)
Quarter: 2022Q2

REPORT INFORMATION
  Report Type: Other
  Country: CA (occurrence: None)
  Receive Date: 20210219
  Receipt Date: 20220621
  Transmission Date: 20220721
  Serious: Yes (Hospitalization)
  Sender: FDA-Public Use
  Company Number: CA-ROCHE-2768936

PATIENT
  Sex: Female

DRUGS (5)
  1. OCREVUS [Suspect]
     Active Substance: OCRELIZUMAB
     Indication: Relapsing-remitting multiple sclerosis
     Dosage: 300 MG AT DAY 0 AND 14, THEN 600 MG EVERY 6 MONTH
     Route: 042
     Dates: start: 20190716
  2. ACCUTANE [Concomitant]
     Active Substance: ISOTRETINOIN
  3. TRAMADOL [Concomitant]
     Active Substance: TRAMADOL
  4. ACETAMINOPHEN [Concomitant]
     Active Substance: ACETAMINOPHEN
  5. CIPRALEX [Concomitant]
     Active Substance: ESCITALOPRAM OXALATE
     Indication: Anxiety

REACTIONS (5)
  - Fatigue [Not Recovered/Not Resolved]
  - Feeling abnormal [Not Recovered/Not Resolved]
  - Anxiety [Recovered/Resolved]
  - Oral herpes [Not Recovered/Not Resolved]
  - Ankle fracture [Recovered/Resolved]
